FAERS Safety Report 5837861-5 (Version None)
Quarter: 2008Q3

REPORT INFORMATION
  Report Type: 
  Country: None (occurrence: None)
  Receive Date: 20080808
  Receipt Date: 20080304
  Transmission Date: 20090109
  Serious: No
  Sender: FDA-Public Use
  Company Number: A0713273A

PATIENT
  Age: 57 Year
  Sex: Female

DRUGS (3)
  1. PAXIL CR [Suspect]
     Indication: DEPRESSION
     Dosage: 12.5MG PER DAY
     Route: 048
     Dates: end: 20080224
  2. CHINESE HERBS [Concomitant]
  3. VITAMIN TAB [Concomitant]

REACTIONS (5)
  - AGITATION [None]
  - DIZZINESS [None]
  - HYPERHIDROSIS [None]
  - POOR QUALITY SLEEP [None]
  - THINKING ABNORMAL [None]
